FAERS Safety Report 12393691 (Version 1)
Quarter: 2016Q2

REPORT INFORMATION
  Report Type: Spontaneous
  Country: US (occurrence: None)
  Receive Date: 20160520
  Receipt Date: 20160520
  Transmission Date: 20160815
  Serious: Yes (Other)
  Sender: FDA-Public Use
  Company Number: None

PATIENT
  Age: 11 Year
  Sex: Male
  Weight: 35.38 kg

DRUGS (6)
  1. ZANTAC [Concomitant]
     Active Substance: RANITIDINE HYDROCHLORIDE
  2. MALOXX [Concomitant]
  3. POLYETHYLENE GLYCOL [Suspect]
     Active Substance: POLYETHYLENE GLYCOLS
     Indication: CONSTIPATION
     Dosage: 10 CAPFULLS AT BEDTIME TAKEN BY MOUTH
     Route: 048
     Dates: start: 20160428, end: 20160517
  4. PROBIOTIC [Concomitant]
     Active Substance: PROBIOTICS NOS
  5. ZYRTEC [Concomitant]
     Active Substance: CETIRIZINE HYDROCHLORIDE
  6. MULTI VITAMIN [Concomitant]
     Active Substance: VITAMINS

REACTIONS (10)
  - Headache [None]
  - Eye pain [None]
  - Lip swelling [None]
  - Constipation [None]
  - Crying [None]
  - Anxiety [None]
  - Pruritus [None]
  - Swollen tongue [None]
  - Aggression [None]
  - Lethargy [None]

NARRATIVE: CASE EVENT DATE: 20160518
